FAERS Safety Report 9919336 (Version 4)
Quarter: 2014Q2

REPORT INFORMATION
  Report Type: Report from Study
  Country: LT (occurrence: LT)
  Receive Date: 20140224
  Receipt Date: 20140513
  Transmission Date: 20141212
  Serious: Yes (Hospitalization)
  Sender: FDA-Public Use
  Company Number: GB-009507513-1402USA009759

PATIENT
  Age: 73 Year
  Sex: Female

DRUGS (7)
  1. ALENDRONATE SODIUM [Suspect]
     Indication: OSTEOPOROSIS
     Dosage: STRENGTH 70 MG, QW
     Route: 048
     Dates: start: 20080111
  2. CALCIUM (UNSPECIFIED) [Concomitant]
     Indication: OSTEOPOROSIS
     Dosage: TOTAL DAILY DOSE: 500 MG
     Dates: start: 20071129
  3. VITAMIN D (UNSPECIFIED) [Concomitant]
     Indication: OSTEOPOROSIS
     Dosage: TOTAL DAILY DOSE: 400 IU
     Dates: start: 20071129
  4. METFORMIN [Concomitant]
     Indication: DIABETES MELLITUS
     Dosage: 400 MG, BID
     Dates: start: 20050101
  5. ASPIRIN [Concomitant]
     Indication: CORONARY ARTERY DISEASE
     Dosage: 100 MG, QD
     Dates: start: 20080625
  6. LERCANIDIPINE [Concomitant]
     Indication: HYPERTENSION
     Dosage: 10 MG, QD
     Dates: start: 20081205
  7. RILMENIDINE [Concomitant]
     Indication: HYPERTENSION
     Dosage: 1 MG, QD
     Dates: start: 20090105

REACTIONS (1)
  - Transient ischaemic attack [Recovered/Resolved]
